FAERS Safety Report 23572155 (Version 2)
Quarter: 2025Q1

REPORT INFORMATION
  Report Type: Spontaneous
  Country: US (occurrence: US)
  Receive Date: 20240227
  Receipt Date: 20250222
  Transmission Date: 20250409
  Serious: No
  Sender: SANOFI AVENTIS
  Company Number: US-SA-SAC20240223000292

PATIENT
  Age: 47 Year
  Sex: Male
  Weight: 94.8 kg

DRUGS (21)
  1. DUPIXENT [Suspect]
     Active Substance: DUPILUMAB
     Indication: Dermatitis atopic
     Dosage: 300 MG, QOW
     Route: 058
     Dates: start: 202312
  2. KETOCONAZOLE [Concomitant]
     Active Substance: KETOCONAZOLE
  3. TRIAMCINOLONE ACETONIDE [Concomitant]
     Active Substance: TRIAMCINOLONE ACETONIDE
  4. CLOBETASOL [Concomitant]
     Active Substance: CLOBETASOL
  5. HALOBETASOL PROPIONATE [Concomitant]
     Active Substance: HALOBETASOL PROPIONATE
  6. SYMBICORT [Concomitant]
     Active Substance: BUDESONIDE\FORMOTEROL FUMARATE DIHYDRATE
  7. AMMONIUM LACTATE [Concomitant]
     Active Substance: AMMONIUM LACTATE
  8. FLUTICASONE PROPIONATE [Concomitant]
     Active Substance: FLUTICASONE PROPIONATE
  9. AZELASTINE HYDROCHLORIDE [Concomitant]
     Active Substance: AZELASTINE HYDROCHLORIDE
  10. TYLENOL EXTRA STRENGTH [Concomitant]
     Active Substance: ACETAMINOPHEN
  11. FLUOCINOLONE ACETONIDE [Concomitant]
     Active Substance: FLUOCINOLONE ACETONIDE
  12. GENTIAN VIOLET [Concomitant]
     Active Substance: GENTIAN VIOLET
  13. EUCRISA [Concomitant]
     Active Substance: CRISABOROLE
  14. TERBINAFINE HYDROCHLORIDE [Concomitant]
     Active Substance: TERBINAFINE HYDROCHLORIDE
  15. FUROSEMIDE [Concomitant]
     Active Substance: FUROSEMIDE
  16. ALBUTEROL SULFATE [Concomitant]
     Active Substance: ALBUTEROL SULFATE
  17. BENZOYL PEROXIDE [Concomitant]
     Active Substance: BENZOYL PEROXIDE
     Indication: Acne
  18. CETIRIZINE [Concomitant]
     Active Substance: CETIRIZINE HYDROCHLORIDE
  19. VITAMIN B12 [Concomitant]
     Active Substance: CYANOCOBALAMIN
  20. EPIPEN [Concomitant]
     Active Substance: EPINEPHRINE
  21. ADVIL [Concomitant]
     Active Substance: IBUPROFEN

REACTIONS (5)
  - Injection site discomfort [Not Recovered/Not Resolved]
  - Hypoaesthesia [Not Recovered/Not Resolved]
  - Peripheral swelling [Not Recovered/Not Resolved]
  - Injection site pain [Not Recovered/Not Resolved]
  - Rash [Unknown]
